FAERS Safety Report 7864301-7 (Version None)
Quarter: 2011Q4

REPORT INFORMATION
  Report Type: 
  Country: None (occurrence: None)
  Receive Date: 20111028
  Receipt Date: 20110509
  Transmission Date: 20120403
  Serious: No
  Sender: FDA-Public Use
  Company Number: US-GLAXOSMITHKLINE-A0926609A

PATIENT
  Age: 56 Year
  Sex: Female

DRUGS (7)
  1. THYROID MEDICATION [Concomitant]
  2. GASTRIC TUBE FEEDING [Concomitant]
  3. SEREVENT [Suspect]
     Indication: ASTHMA
     Route: 055
  4. PULMICORT [Concomitant]
  5. ZOLOFT [Concomitant]
  6. ASMACORT [Concomitant]
  7. BACLOFEN [Concomitant]

REACTIONS (2)
  - INSOMNIA [None]
  - INITIAL INSOMNIA [None]
